FAERS Safety Report 11195114 (Version 1)
Quarter: 2015Q2

REPORT INFORMATION
  Report Type: Spontaneous
  Country: US (occurrence: None)
  Receive Date: 20150615
  Receipt Date: 20150615
  Transmission Date: 20150821
  Serious: Yes (Disabling)
  Sender: FDA-Public Use
  Company Number: None

PATIENT
  Age: 65 Year
  Sex: Female
  Weight: 58.97 kg

DRUGS (5)
  1. CALCIUM [Concomitant]
     Active Substance: CALCIUM
  2. ESTER-C [Concomitant]
     Active Substance: CALCIUM\VITAMINS
  3. TEA [Concomitant]
     Active Substance: TEA LEAF
  4. METHOTREXATE 2.5MG [Suspect]
     Active Substance: METHOTREXATE
     Indication: RHEUMATOID ARTHRITIS
     Route: 048
     Dates: start: 20140618, end: 20141118
  5. CHERRY JUICE [Concomitant]

REACTIONS (2)
  - Pollakiuria [None]
  - Sleep disorder [None]

NARRATIVE: CASE EVENT DATE: 20141118
